FAERS Safety Report 21605394 (Version 4)
Quarter: 2023Q1

REPORT INFORMATION
  Report Type: Spontaneous
  Country: DE (occurrence: None)
  Receive Date: 20221116
  Receipt Date: 20230320
  Transmission Date: 20230417
  Serious: Yes (Other)
  Sender: FDA-Public Use
  Company Number: DE-ROCHE-3215574

PATIENT
  Sex: Male

DRUGS (8)
  1. OCREVUS [Suspect]
     Active Substance: OCRELIZUMAB
     Indication: Multiple sclerosis
     Dosage: LAST DOSE OF OCRELIZUMAB IN SEPTEMBER 2020
     Route: 042
     Dates: start: 2019, end: 2021
  2. COPAXONE [Suspect]
     Active Substance: GLATIRAMER ACETATE
     Indication: Multiple sclerosis
     Route: 065
     Dates: start: 2021
  3. VITAMIN D3 [Concomitant]
     Active Substance: CHOLECALCIFEROL
     Route: 048
  4. MAGNESIUM [Concomitant]
     Active Substance: MAGNESIUM
  5. VITAMIN B12 [Concomitant]
     Active Substance: CYANOCOBALAMIN
  6. CANDESARTAN [Concomitant]
     Active Substance: CANDESARTAN
     Indication: Hypertension
  7. NEBIVOLOL [Concomitant]
     Active Substance: NEBIVOLOL
     Indication: Hypertension
  8. TYSABRI [Concomitant]
     Active Substance: NATALIZUMAB

REACTIONS (15)
  - Neoplasm malignant [Recovered/Resolved]
  - Multiple sclerosis [Not Recovered/Not Resolved]
  - Multiple sclerosis relapse [Unknown]
  - General physical health deterioration [Not Recovered/Not Resolved]
  - Fatigue [Unknown]
  - B-lymphocyte count abnormal [Recovered/Resolved]
  - Muscular weakness [Unknown]
  - Hypoaesthesia [Unknown]
  - Paraesthesia [Unknown]
  - Pain in extremity [Unknown]
  - Gastrooesophageal reflux disease [Recovered/Resolved]
  - Constipation [Recovered/Resolved]
  - COVID-19 [Recovered/Resolved]
  - Balance disorder [Unknown]
  - Bladder disorder [Unknown]

NARRATIVE: CASE EVENT DATE: 20220701
